FAERS Safety Report 24161792 (Version 1)
Quarter: 2024Q3

REPORT INFORMATION
  Report Type: Spontaneous
  Country: US (occurrence: None)
  Receive Date: 20240801
  Receipt Date: 20240801
  Transmission Date: 20241017
  Serious: No
  Sender: ASTRAZENECA
  Company Number: 2024A172038

PATIENT

DRUGS (3)
  1. BUDESONIDE [Suspect]
     Active Substance: BUDESONIDE
     Route: 055
  2. INFLECTRA [Suspect]
     Active Substance: INFLIXIMAB-DYYB
  3. ENTYVIO [Suspect]
     Active Substance: VEDOLIZUMAB

REACTIONS (8)
  - Colitis ulcerative [Unknown]
  - Migraine [Unknown]
  - Acne [Unknown]
  - Erythema [Unknown]
  - Dilated pores [Unknown]
  - Hair growth abnormal [Unknown]
  - Dry skin [Unknown]
  - Anxiety [Unknown]
